FAERS Safety Report 24051583 (Version 1)
Quarter: 2024Q3

REPORT INFORMATION
  Report Type: Spontaneous
  Country: ZA (occurrence: None)
  Receive Date: 20240704
  Receipt Date: 20240704
  Transmission Date: 20241017
  Serious: Yes (Hospitalization)
  Sender: ASTRAZENECA
  Company Number: 2024A148136

PATIENT
  Age: 21915 Day
  Sex: Female

DRUGS (6)
  1. BUDESONIDE\FORMOTEROL FUMARATE DIHYDRATE [Suspect]
     Active Substance: BUDESONIDE\FORMOTEROL FUMARATE DIHYDRATE
     Indication: Asthma
     Dosage: 120 MG UNKNOWN UNKNOWN
     Route: 055
  2. ZOPICLONE [Concomitant]
     Active Substance: ZOPICLONE
     Indication: Somnolence
     Route: 048
  3. SULPIRIDE [Concomitant]
     Active Substance: SULPIRIDE
     Indication: Ulcer
     Route: 048
  4. ZYDUS FLUOXETINE [Concomitant]
     Indication: Depression
     Route: 048
  5. FLUTICASONE FUROATE [Concomitant]
     Active Substance: FLUTICASONE FUROATE
     Indication: Hypersensitivity
     Route: 045
  6. NEXIPRAZ OTC [Concomitant]
     Indication: Ulcer
     Route: 048

REACTIONS (1)
  - Infection [Unknown]
